FAERS Safety Report 9738841 (Version 1)
Quarter: 2013Q4

REPORT INFORMATION
  Report Type: Spontaneous
  Country: US (occurrence: US)
  Receive Date: 20131209
  Receipt Date: 20131209
  Transmission Date: 20140711
  Serious: No
  Sender: FDA-Public Use
  Company Number: US-PFIZER INC-2013350568

PATIENT
  Age: 55 Year
  Sex: Female
  Weight: 49.9 kg

DRUGS (3)
  1. GEODON [Suspect]
     Indication: BIPOLAR DISORDER
     Dosage: BETWEEN 40 MG TO 80 MG, UNK
  2. CLONAZEPAM [Concomitant]
     Indication: NERVOUS SYSTEM DISORDER
     Dosage: UNK
  3. CELEXA [Concomitant]
     Indication: DEPRESSION
     Dosage: UNK

REACTIONS (5)
  - Poor quality drug administered [Unknown]
  - Product quality issue [Unknown]
  - Musculoskeletal stiffness [Recovered/Resolved]
  - Musculoskeletal disorder [Recovered/Resolved]
  - Pain in extremity [Recovered/Resolved]
